FAERS Safety Report 7636733-3 (Version None)
Quarter: 2011Q3

REPORT INFORMATION
  Report Type: 
  Country: None (occurrence: None)
  Receive Date: 20110726
  Receipt Date: 20110720
  Transmission Date: 20111222
  Serious: Yes (Hospitalization)
  Sender: FDA-Public Use
  Company Number: KR-B.I. PHARMACEUTICALS,INC./RIDGEFIELD-2011-CS-00593RK

PATIENT
  Age: 71 Year
  Sex: Female
  Weight: 55 kg

DRUGS (2)
  1. PRADAXA [Suspect]
  2. PRADAXA [Suspect]
     Indication: CEREBROVASCULAR ACCIDENT PROPHYLAXIS
     Dosage: 300 MG
     Route: 048
     Dates: start: 20110628, end: 20110704

REACTIONS (2)
  - FOREIGN BODY [None]
  - OESOPHAGITIS [None]
